FAERS Safety Report 24985342 (Version 2)
Quarter: 2025Q1

REPORT INFORMATION
  Report Type: Report from Study
  Country: US (occurrence: US)
  Receive Date: 20250219
  Receipt Date: 20250303
  Transmission Date: 20250409
  Serious: Yes (Other)
  Sender: BAYER HEALTHCARE PHARMACEUTICALS INC.
  Company Number: US-BAYER-2025A008281

PATIENT
  Age: 73 Year
  Sex: Female

DRUGS (5)
  1. ADEMPAS [Suspect]
     Active Substance: RIOCIGUAT
     Indication: Pulmonary arterial hypertension
  2. ADEMPAS [Suspect]
     Active Substance: RIOCIGUAT
     Indication: Pulmonary arterial hypertension
     Dosage: 1.5 MG, TID
     Route: 048
     Dates: start: 202410
  3. ADEMPAS [Suspect]
     Active Substance: RIOCIGUAT
     Indication: Pulmonary arterial hypertension
     Dosage: 1.5 MG, TID
     Route: 048
     Dates: start: 202411
  4. ADEMPAS [Suspect]
     Active Substance: RIOCIGUAT
     Indication: Pulmonary arterial hypertension
     Dosage: 0.5 MG, TID
     Route: 048
     Dates: start: 202501
  5. UPTRAVI [Suspect]
     Active Substance: SELEXIPAG
     Dosage: UNK UNK, QD
     Dates: start: 202501

REACTIONS (11)
  - Pulmonary oedema [Recovered/Resolved]
  - Headache [None]
  - Nausea [None]
  - Diarrhoea [None]
  - Fluid retention [None]
  - Weight increased [None]
  - Decreased appetite [None]
  - Dyspnoea exertional [None]
  - Dyspnoea [None]
  - Adverse drug reaction [None]
  - Diarrhoea [None]

NARRATIVE: CASE EVENT DATE: 20250101
